FAERS Safety Report 7420806-4 (Version None)
Quarter: 2011Q2

REPORT INFORMATION
  Report Type: 
  Country: None (occurrence: None)
  Receive Date: 20110418
  Receipt Date: 20110404
  Transmission Date: 20111010
  Serious: Yes (Death, Other)
  Sender: FDA-Public Use
  Company Number: US-CELGENEUS-163-50794-10110644

PATIENT
  Sex: Male

DRUGS (24)
  1. VIDAZA [Suspect]
     Dosage: 170 MILLIGRAM
     Route: 051
     Dates: start: 20090427, end: 20090501
  2. SEREVENT [Concomitant]
     Dosage: 1 PUFF
     Route: 055
  3. MEDROL [Concomitant]
     Dosage: 4 MILLIGRAM
     Route: 048
  4. VIDAZA [Suspect]
     Dosage: 85 MILLIGRAM
     Route: 051
     Dates: start: 20091214, end: 20091218
  5. ZYVOX [Concomitant]
     Dosage: 600 MILLIGRAM
     Route: 048
     Dates: start: 20100930
  6. ACCOLATE [Concomitant]
     Dosage: 20 MILLIGRAM
     Route: 048
  7. CENTRUM SILVER [Concomitant]
     Dosage: 1 TABLET
     Route: 048
  8. VIDAZA [Suspect]
     Dosage: 170 MILLIGRAM
     Route: 051
     Dates: start: 20090720, end: 20090724
  9. ATIVAN [Concomitant]
     Dosage: 1 MILLIGRAM
     Route: 048
  10. ATROVENT [Concomitant]
     Route: 055
  11. VIDAZA [Suspect]
     Dosage: 170 MILLIGRAM
     Route: 051
     Dates: start: 20090622, end: 20090626
  12. VIDAZA [Suspect]
     Dosage: 170 MILLIGRAM
     Route: 051
     Dates: start: 20091116, end: 20091120
  13. ACETAMINOPHEN [Concomitant]
     Route: 048
  14. VIDAZA [Suspect]
     Dosage: 170 MILLIGRAM
     Route: 051
     Dates: start: 20090526, end: 20090529
  15. REVLIMID [Suspect]
     Dosage: 5 MILLIGRAM
     Route: 048
     Dates: start: 20100915, end: 20101017
  16. DELTASONE [Concomitant]
     Dosage: 20 MILLIGRAM
     Route: 048
     Dates: start: 20100930
  17. PULMICORT [Concomitant]
     Route: 055
  18. EXJADE [Concomitant]
     Dosage: 1000 MILLIGRAM
     Route: 048
  19. GUAIFENESIN [Concomitant]
     Route: 065
  20. MIRALAX [Concomitant]
     Dosage: 17 GRAM
     Route: 048
  21. VIDAZA [Suspect]
     Dosage: 170 MILLIGRAM
     Route: 051
     Dates: start: 20090316, end: 20090320
  22. VIDAZA [Suspect]
     Dosage: 85 MILLIGRAM
     Route: 051
     Dates: start: 20100419, end: 20100421
  23. INSULIN [Concomitant]
     Dosage: 3-6 UNITS
     Route: 065
     Dates: start: 20100930
  24. PRAVASTATIN [Concomitant]
     Route: 065

REACTIONS (4)
  - MYELODYSPLASTIC SYNDROME [None]
  - ANAEMIA [None]
  - INTERSTITIAL LUNG DISEASE [None]
  - PULMONARY TOXICITY [None]
